FAERS Safety Report 15704490 (Version 3)
Quarter: 2019Q1

REPORT INFORMATION
  Report Type: Report from Study
  Country: US (occurrence: US)
  Receive Date: 20181210
  Receipt Date: 20190121
  Transmission Date: 20190417
  Serious: Yes (Other)
  Sender: FDA-Public Use
  Company Number: US-AMGEN INC.-USASL2018175461

PATIENT
  Age: 63 Year
  Sex: Female

DRUGS (49)
  1. AIMOVIG [Suspect]
     Active Substance: ERENUMAB-AOOE
     Indication: MIGRAINE
     Dosage: 140 MG, QMO
     Route: 058
     Dates: start: 20180807, end: 201809
  2. CELEBREX [Concomitant]
     Active Substance: CELECOXIB
     Indication: MUSCLE STRAIN
     Dosage: 200 MG, BID
     Route: 048
  3. MAXALT [Concomitant]
     Active Substance: RIZATRIPTAN BENZOATE
     Indication: MIGRAINE
     Dosage: 10 MG, AS NECESSARY
     Route: 048
  4. POTASSIUM CHLORIDE. [Concomitant]
     Active Substance: POTASSIUM CHLORIDE
     Indication: HYPOKALAEMIA
     Dosage: 10 MEQ, QD
     Route: 048
  5. PROTONIX [Concomitant]
     Active Substance: PANTOPRAZOLE SODIUM
     Dosage: 40 MG, QD, QAM AC
     Route: 048
  6. IBUPROFEN. [Concomitant]
     Active Substance: IBUPROFEN
     Indication: MUSCLE STRAIN
     Dosage: 800 MG, 2 OR 3 TIMES A DAY
  7. CLARINEX [Concomitant]
     Active Substance: DESLORATADINE
     Dosage: 5 MG, QD
     Route: 048
  8. IMITREX [Concomitant]
     Active Substance: SUMATRIPTAN SUCCINATE
     Dosage: 100 MG, BID AS NECESSARY
     Route: 048
  9. FLONASE [Concomitant]
     Active Substance: FLUTICASONE PROPIONATE
     Dosage: 50 MUG/ ACTUATION, QD
     Route: 045
  10. MACRODANTIN [Suspect]
     Active Substance: NITROFURANTOIN
     Indication: URINARY TRACT INFECTION
     Dosage: UNK
     Route: 065
     Dates: start: 201808, end: 201808
  11. BUMEX [Suspect]
     Active Substance: BUMETANIDE
     Indication: OEDEMA
     Dosage: 1 MG, QD
     Route: 048
  12. LASIX [Concomitant]
     Active Substance: FUROSEMIDE
     Dosage: 1 DF, QD (AS NECESSARY)
     Route: 048
  13. SAVELLA [Concomitant]
     Active Substance: MILNACIPRAN HYDROCHLORIDE
     Indication: FIBROMYALGIA
     Dosage: 1 DF, BID; 1 DF, QD
     Route: 048
  14. BACLOFEN. [Concomitant]
     Active Substance: BACLOFEN
     Indication: MUSCLE STRAIN
     Dosage: UNK
     Route: 065
  15. EXFORGE HCT [Concomitant]
     Active Substance: AMLODIPINE BESYLATE\HYDROCHLOROTHIAZIDE\VALSARTAN
     Dosage: 12.5 MG, QD
     Route: 048
  16. FOLIC ACID. [Concomitant]
     Active Substance: FOLIC ACID
     Dosage: 1 MG, QD
     Route: 048
  17. HEPARIN [Concomitant]
     Active Substance: HEPARIN SODIUM
     Dosage: 5000 UNIT, Q8H
     Route: 058
  18. MILK OF MAGNESIA [Concomitant]
     Active Substance: MAGNESIUM HYDROXIDE
     Dosage: 30 ML, QD AS NECESSARY
     Route: 048
  19. SUMATRIPTAN. [Concomitant]
     Active Substance: SUMATRIPTAN
     Indication: MIGRAINE
     Dosage: UNK
     Route: 065
  20. TRAMADOL. [Concomitant]
     Active Substance: TRAMADOL
     Indication: BACK PAIN
     Dosage: UNK
     Dates: end: 20180816
  21. AMITIZA [Concomitant]
     Active Substance: LUBIPROSTONE
     Dosage: 8 MUG, QD; 8 MUG, BID
     Route: 048
  22. SYNTHROID [Concomitant]
     Active Substance: LEVOTHYROXINE SODIUM
     Dosage: 1 DF, QD EARLY AM
     Route: 048
  23. TRIAMCINOLONE ACETONIDE. [Concomitant]
     Active Substance: TRIAMCINOLONE ACETONIDE
     Indication: RASH
     Dosage: UNK UNK, BID
     Route: 061
  24. VENTOLIN HFA [Concomitant]
     Active Substance: ALBUTEROL SULFATE
     Dosage: 90 MCG/ACTUATION, 2 PUFFS AS DIRECTED QID PRN
     Route: 065
  25. DEXILANT [Concomitant]
     Active Substance: DEXLANSOPRAZOLE
     Dosage: 180 MG, BID
     Route: 048
  26. TENORMIN [Concomitant]
     Active Substance: ATENOLOL
     Dosage: 50 MG, QD
     Route: 048
  27. SIMETHICONE (DIMETHICONE) [Concomitant]
     Active Substance: DIMETHICONE
     Dosage: 80 MG, Q8H AS NECESSARY
     Route: 048
  28. FLUCONAZOLE. [Concomitant]
     Active Substance: FLUCONAZOLE
     Dosage: 1 DF, QD
     Route: 065
  29. NORVASC [Concomitant]
     Active Substance: AMLODIPINE BESYLATE
     Dosage: 2.5 MG, QD
     Route: 048
  30. RHINOCORT AQUA [Concomitant]
     Active Substance: BUDESONIDE
     Dosage: 32 MUG/ ACTUATION
     Route: 065
  31. VITAMIN B12 [Concomitant]
     Active Substance: CYANOCOBALAMIN
     Dosage: 1000 MUG, QD
     Route: 030
  32. LEVOXYL [Concomitant]
     Active Substance: LEVOTHYROXINE SODIUM
     Dosage: 200 MUG, QD EARLY AM
     Route: 048
  33. LIPITOR [Concomitant]
     Active Substance: ATORVASTATIN CALCIUM
     Dosage: 1 DF, QD
     Route: 065
  34. NEURONTIN [Concomitant]
     Active Substance: GABAPENTIN
     Dosage: 600 MG, QID; 600 MG TID
     Route: 048
  35. PREMARIN [Concomitant]
     Active Substance: ESTROGENS, CONJUGATED
     Dosage: 0.625 MG/ GRAM, QOD AT QHS X 2 WEEKS, THEN ONCE WEEKLY BY VAGINAL ROUTE AND 1.25 MG TABLET, QD, 1.25
  36. MILNACIPRAN [Concomitant]
     Active Substance: MILNACIPRAN
     Indication: FIBROMYALGIA
     Dosage: UNK
  37. FLECTOR [Concomitant]
     Active Substance: DICLOFENAC EPOLAMINE
     Dosage: APPLY 1 PATCH TO SHOULDER BID
  38. REXULTI [Concomitant]
     Active Substance: BREXPIPRAZOLE
     Dosage: 3 MG, QD
     Route: 048
  39. ZYRTEC [Concomitant]
     Active Substance: CETIRIZINE HYDROCHLORIDE
     Dosage: 10 MG, QD
     Route: 048
  40. ZYPREXA [Concomitant]
     Active Substance: OLANZAPINE
     Dosage: 2.5 MG, QD
     Route: 048
  41. KCL [Concomitant]
     Active Substance: POTASSIUM CHLORIDE
     Dosage: 20 MEQ, ONE TIME DOSE
     Route: 042
  42. ZOFRAN [Concomitant]
     Active Substance: ONDANSETRON HYDROCHLORIDE
     Dosage: 4 MG, Q8H AS NECESSARY
     Route: 042
  43. VITAMIN D3 [Concomitant]
     Active Substance: CHOLECALCIFEROL
     Dosage: 2000, UNIT QD
     Route: 048
  44. MYLANTA GAS [Concomitant]
     Dosage: 80 MG, Q8H AS NECESSARY
  45. SODIUM CHLORIDE. [Concomitant]
     Active Substance: SODIUM CHLORIDE
     Dosage: FLUSH BAG AS NECESSARY
     Route: 042
  46. ATENOLOL. [Concomitant]
     Active Substance: ATENOLOL
     Dosage: 100 MG, QD
     Route: 048
  47. LEVOTHROID [Concomitant]
     Active Substance: LEVOTHYROXINE SODIUM
     Dosage: 300 MUG, QD
     Route: 048
  48. TYLENOL [Concomitant]
     Active Substance: ACETAMINOPHEN
     Dosage: 650 MG, Q4H, AS NECESSARY
     Route: 048
  49. BREXPIPRAZOLE [Concomitant]
     Active Substance: BREXPIPRAZOLE
     Indication: DEPRESSION
     Dosage: UNK
     Route: 065

REACTIONS (14)
  - Thalamic infarction [Unknown]
  - Rash [Unknown]
  - Urinary tract infection [Unknown]
  - Snoring [Unknown]
  - Somnolence [Unknown]
  - Oedema [Recovering/Resolving]
  - Leukocytosis [Recovered/Resolved]
  - Fall [Unknown]
  - Head injury [Unknown]
  - Polycythaemia [Recovered/Resolved]
  - Rosacea [Not Recovered/Not Resolved]
  - Acute kidney injury [Recovered/Resolved]
  - Metabolic encephalopathy [Recovered/Resolved]
  - Dehydration [Unknown]

NARRATIVE: CASE EVENT DATE: 2018
